FAERS Safety Report 18751384 (Version 1)
Quarter: 2021Q1

REPORT INFORMATION
  Report Type: Spontaneous
  Country: IT (occurrence: IT)
  Receive Date: 20210118
  Receipt Date: 20210118
  Transmission Date: 20210419
  Serious: Yes (Hospitalization)
  Sender: FDA-Public Use
  Company Number: IT-PFIZER INC-2021026852

PATIENT
  Age: 55 Year
  Sex: Male

DRUGS (2)
  1. TAVOR (LORAZEPAM) [Suspect]
     Active Substance: LORAZEPAM
     Dosage: 4 MG, SINGLE
     Route: 048
     Dates: start: 20210103, end: 20210103
  2. LAROXYL [Suspect]
     Active Substance: AMITRIPTYLINE HYDROCHLORIDE
     Dosage: 30 DROP, SINGLE
     Route: 048
     Dates: start: 20210103, end: 20210103

REACTIONS (3)
  - Suicide attempt [Unknown]
  - Intentional overdose [Recovering/Resolving]
  - Sopor [Recovering/Resolving]

NARRATIVE: CASE EVENT DATE: 20210103
